FAERS Safety Report 9350813 (Version 2)
Quarter: 2013Q2

REPORT INFORMATION
  Report Type: Spontaneous
  Country: CN (occurrence: CN)
  Receive Date: 20130617
  Receipt Date: 20130618
  Transmission Date: 20140414
  Serious: Yes (Hospitalization)
  Sender: FDA-Public Use
  Company Number: CN-JNJFOC-20130606516

PATIENT
  Sex: Female

DRUGS (4)
  1. TYLENOL [Suspect]
     Indication: NASOPHARYNGITIS
     Route: 048
     Dates: start: 20120104, end: 20120104
  2. POTASSIUM SODIUM DEHYDROANDROAN DROGRAPHOLIDE SUCCINATE [Concomitant]
     Indication: NASOPHARYNGITIS
     Route: 042
  3. AMBROXOL [Concomitant]
     Indication: NASOPHARYNGITIS
     Route: 042
  4. CHINESE HERBAL MEDICINE [Concomitant]
     Indication: NASOPHARYNGITIS
     Route: 042

REACTIONS (2)
  - Bronchopneumonia [Unknown]
  - Hepatic enzyme increased [Recovered/Resolved]
